FAERS Safety Report 6149064-8 (Version None)
Quarter: 2009Q2

REPORT INFORMATION
  Report Type: 
  Country: None (occurrence: None)
  Receive Date: 20090407
  Receipt Date: 20090330
  Transmission Date: 20091009
  Serious: Yes (Life-Threatening, Other)
  Sender: FDA-Public Use
  Company Number: 234438

PATIENT
  Age: 55 Year
  Sex: Female

DRUGS (1)
  1. ADRENALIN IN OIL INJ [Suspect]
     Indication: ANAPHYLACTIC REACTION
     Dosage: .5 MG,  INTRAMUSCULAR, INTRAVENOUS BOLUS
     Route: 030

REACTIONS (5)
  - ANAPHYLACTIC REACTION [None]
  - ANGINA UNSTABLE [None]
  - ARTERIOSCLEROSIS CORONARY ARTERY [None]
  - CARDIAC ARREST [None]
  - VASOSPASM [None]
